FAERS Safety Report 7538802-5 (Version None)
Quarter: 2011Q2

REPORT INFORMATION
  Report Type: 
  Country: None (occurrence: None)
  Receive Date: 20110610
  Receipt Date: 20110516
  Transmission Date: 20111010
  Serious: Yes (Hospitalization, Other)
  Sender: FDA-Public Use
  Company Number: US-BAYER-2011-015833

PATIENT
  Age: 26 Year
  Sex: Female
  Weight: 109.75 kg

DRUGS (10)
  1. YASMIN [Suspect]
     Indication: ACNE
     Dosage: UNK
  2. YASMIN [Suspect]
     Indication: CONTRACEPTION
  3. LACTULOSE [Concomitant]
  4. YASMIN [Suspect]
     Indication: DYSMENORRHOEA
  5. DROSPIRENONE AND ETHINYL ESTRADIOL [Suspect]
     Indication: DYSMENORRHOEA
  6. DROSPIRENONE AND ETHINYL ESTRADIOL [Suspect]
     Indication: CONTRACEPTION
  7. MORPHINE [Concomitant]
  8. PERCOCET [Concomitant]
  9. DROSPIRENONE AND ETHINYL ESTRADIOL [Suspect]
     Indication: ACNE
  10. COLACE [Concomitant]

REACTIONS (6)
  - ANXIETY [None]
  - PORTAL VEIN THROMBOSIS [None]
  - PANCREATITIS [None]
  - MESENTERIC VEIN THROMBOSIS [None]
  - PAIN [None]
  - SPLENIC VEIN THROMBOSIS [None]
